FAERS Safety Report 9127281 (Version 1)
Quarter: 2013Q1

REPORT INFORMATION
  Report Type: Spontaneous
  Country: US (occurrence: US)
  Receive Date: 20130228
  Receipt Date: 20130228
  Transmission Date: 20140127
  Serious: No
  Sender: FDA-Public Use
  Company Number: US-GLAXOSMITHKLINE-A0966049A

PATIENT
  Age: 42 Year
  Sex: Male

DRUGS (2)
  1. LAMOTRIGINE [Suspect]
     Indication: CONVULSION
     Dosage: 250MG TWICE PER DAY
     Route: 048
     Dates: start: 20120101
  2. TEGRETOL [Concomitant]

REACTIONS (1)
  - Dizziness [Not Recovered/Not Resolved]
